FAERS Safety Report 9747214 (Version 1)
Quarter: 2013Q4

REPORT INFORMATION
  Report Type: Spontaneous
  Country: NO (occurrence: NO)
  Receive Date: 20131212
  Receipt Date: 20131212
  Transmission Date: 20140711
  Serious: Yes (Other)
  Sender: FDA-Public Use
  Company Number: NO-PFIZER INC-2013350381

PATIENT
  Age: 56 Year
  Sex: Male

DRUGS (1)
  1. CYTARABINE [Suspect]
     Dosage: THE PATIENT GOT A LEAST THREE COURSES OF CYTARABINE DURING NOVEMBER 2013, DOSAGE UNKNOWN
     Route: 042
     Dates: start: 20131119, end: 201311

REACTIONS (4)
  - Urinary retention [Unknown]
  - Nervous system disorder [Unknown]
  - Asthenia [Unknown]
  - Dysarthria [Unknown]
